FAERS Safety Report 24289181 (Version 2)
Quarter: 2024Q4

REPORT INFORMATION
  Report Type: Report from Study
  Country: US (occurrence: US)
  Receive Date: 20240906
  Receipt Date: 20241030
  Transmission Date: 20250114
  Serious: Yes (Other)
  Sender: ALEXION PHARMACEUTICALS
  Company Number: 2024A197595

PATIENT

DRUGS (4)
  1. TAGRISSO [Suspect]
     Active Substance: OSIMERTINIB
  2. TAGRISSO [Suspect]
     Active Substance: OSIMERTINIB
  3. TAGRISSO [Suspect]
     Active Substance: OSIMERTINIB
  4. TAGRISSO [Suspect]
     Active Substance: OSIMERTINIB

REACTIONS (11)
  - Insomnia [Unknown]
  - Pulmonary mass [Unknown]
  - Nail bed bleeding [Unknown]
  - Onychoclasis [Unknown]
  - Nail growth abnormal [Unknown]
  - Dizziness [Unknown]
  - Diarrhoea [Unknown]
  - Alopecia [Unknown]
  - White blood cell count decreased [Unknown]
  - Platelet disorder [Unknown]
  - Dry eye [Unknown]
